FAERS Safety Report 10040957 (Version 1)
Quarter: 2014Q1

REPORT INFORMATION
  Report Type: Spontaneous
  Country: US (occurrence: US)
  Receive Date: 20140327
  Receipt Date: 20140327
  Transmission Date: 20141002
  Serious: No
  Sender: FDA-Public Use
  Company Number: US-PFIZER INC-2014085814

PATIENT
  Sex: Female

DRUGS (1)
  1. CYTOMEL [Suspect]
     Dosage: UNK

REACTIONS (2)
  - Drug ineffective [Unknown]
  - Suspected counterfeit product [Unknown]
